APPROVED DRUG PRODUCT: METOCLOPRAMIDE HYDROCHLORIDE
Active Ingredient: METOCLOPRAMIDE HYDROCHLORIDE
Strength: EQ 10MG BASE
Dosage Form/Route: TABLET;ORAL
Application: A074478 | Product #002
Applicant: CHARTWELL RX SCIENCES LLC
Approved: Oct 5, 1995 | RLD: No | RS: No | Type: DISCN